FAERS Safety Report 6356804-1 (Version None)
Quarter: 2009Q3

REPORT INFORMATION
  Report Type: 
  Country: None (occurrence: None)
  Receive Date: 20090911
  Receipt Date: 20090911
  Transmission Date: 20100115
  Serious: Yes (Other)
  Sender: FDA-Public Use
  Company Number: None

PATIENT
  Sex: Female
  Weight: 72.5755 kg

DRUGS (1)
  1. XALATAN [Suspect]
     Indication: GLAUCOMA
     Dosage: 2 DROPS TOTAL NIGHTLY BOTH EYES
     Dates: start: 20090701, end: 20090801

REACTIONS (5)
  - DRUG HYPERSENSITIVITY [None]
  - PAIN OF SKIN [None]
  - RESTLESSNESS [None]
  - SKIN DISCOLOURATION [None]
  - SLEEP DISORDER [None]
